FAERS Safety Report 11175512 (Version 1)
Quarter: 2015Q2

REPORT INFORMATION
  Report Type: Other
  Country: CA (occurrence: CA)
  Receive Date: 20150609
  Receipt Date: 20150609
  Transmission Date: 20150821
  Serious: Yes (Other)
  Sender: FDA-Public Use
  Company Number: CA-APOTEX-2015AP009709

PATIENT

DRUGS (1)
  1. APO-AMOXI CLAV [Suspect]
     Active Substance: AMOXICILLIN\CLAVULANIC ACID
     Indication: SINUSITIS
     Dosage: 1 DF, QD
     Route: 048

REACTIONS (6)
  - Paraesthesia [Unknown]
  - Vasculitis [Unknown]
  - Feeling hot [Unknown]
  - Vascular pain [Unknown]
  - Muscle spasms [Unknown]
  - Pruritus [Unknown]
